FAERS Safety Report 20861590 (Version 8)
Quarter: 2022Q4

REPORT INFORMATION
  Report Type: Spontaneous
  Country: US (occurrence: US)
  Receive Date: 20220523
  Receipt Date: 20221213
  Transmission Date: 20230113
  Serious: Yes (Hospitalization, Other)
  Sender: FDA-Public Use
  Company Number: US-PFIZER INC-202200743069

PATIENT
  Age: 52 Year
  Sex: Female

DRUGS (1)
  1. IBRANCE [Suspect]
     Active Substance: PALBOCICLIB
     Dosage: 125 MG
     Dates: start: 20220419

REACTIONS (14)
  - Cellulitis [Unknown]
  - Localised infection [Unknown]
  - Product dose omission issue [Unknown]
  - Fatigue [Unknown]
  - Nausea [Unknown]
  - Pain in jaw [Unknown]
  - Headache [Unknown]
  - Throat clearing [Recovered/Resolved]
  - Sensation of foreign body [Recovered/Resolved]
  - Somnolence [Recovered/Resolved]
  - Rhinorrhoea [Unknown]
  - Insomnia [Unknown]
  - Vision blurred [Unknown]
  - Pruritus [Unknown]

NARRATIVE: CASE EVENT DATE: 20220101
